FAERS Safety Report 4690917-5 (Version None)
Quarter: 2005Q2

REPORT INFORMATION
  Report Type: 
  Country: None (occurrence: None)
  Receive Date: 20050610
  Receipt Date: 20050418
  Transmission Date: 20051028
  Serious: Yes (Other)
  Sender: FDA-Public Use
  Company Number: 26574

PATIENT
  Age: 65 Year
  Sex: Female

DRUGS (2)
  1. FLECAINIDE ACETATE [Suspect]
     Indication: ATRIAL FIBRILLATION
     Dosage: ORAL AT LEAST 3
     Route: 048
  2. BISOPROLOL FUMARATE [Suspect]
     Dosage: ORAL
     Route: 048

REACTIONS (2)
  - MYCOSIS FUNGOIDES [None]
  - SKIN LESION [None]
